FAERS Safety Report 23059839 (Version 7)
Quarter: 2025Q1

REPORT INFORMATION
  Report Type: Report from Study
  Country: CZ (occurrence: CZ)
  Receive Date: 20231012
  Receipt Date: 20250123
  Transmission Date: 20250409
  Serious: Yes (Hospitalization, Other)
  Sender: PFIZER
  Company Number: CZ-BAXTER-2023BAX031596

PATIENT
  Age: 72 Year
  Sex: Female
  Weight: 72 kg

DRUGS (27)
  1. RITUXIMAB [Suspect]
     Active Substance: RITUXIMAB
     Indication: Diffuse large B-cell lymphoma
     Dosage: 633.75 MG, EVERY 3 WEEKS
     Route: 042
     Dates: start: 20230704
  2. CYCLOPHOSPHAMIDE [Suspect]
     Active Substance: CYCLOPHOSPHAMIDE
     Indication: Diffuse large B-cell lymphoma
     Dosage: 1267.5 MG EVERY 3 WEEKS
     Route: 042
     Dates: start: 20230704, end: 20230905
  3. PREDNISONE [Suspect]
     Active Substance: PREDNISONE
     Indication: Diffuse large B-cell lymphoma
     Route: 048
     Dates: start: 20230704, end: 20230909
  4. DOXORUBICIN [Suspect]
     Active Substance: DOXORUBICIN
     Indication: Diffuse large B-cell lymphoma
     Dosage: 84.5 MG, EVERY 3 WEEKS
     Route: 042
     Dates: start: 20230704
  5. VINCRISTINE [Suspect]
     Active Substance: VINCRISTINE
     Indication: Diffuse large B-cell lymphoma
     Dosage: 2 MG, EVERY 3 WEEKS
     Route: 042
     Dates: start: 20230704, end: 20230905
  6. EPCORITAMAB [Suspect]
     Active Substance: EPCORITAMAB
     Indication: Diffuse large B-cell lymphoma
     Route: 058
     Dates: start: 20230704, end: 20230905
  7. BISEPTOL [Concomitant]
     Active Substance: SULFAMETHOXAZOLE\TRIMETHOPRIM
     Indication: Pneumocystis jirovecii pneumonia
     Dosage: 400 MG EVERY EVENING, EVERY 1 DAYS
     Dates: start: 20230704
  8. BISEPTOL [Concomitant]
     Active Substance: SULFAMETHOXAZOLE\TRIMETHOPRIM
     Indication: Prophylaxis
  9. FENOFIBRATE [Concomitant]
     Active Substance: FENOFIBRATE
     Indication: Hyperlipidaemia
     Dosage: 215 MG, 1X/DAY
     Dates: start: 2012, end: 20230911
  10. FENOFIBRATE [Concomitant]
     Active Substance: FENOFIBRATE
     Indication: Dyslipidaemia
  11. ASPIRIN\GLYCINE [Concomitant]
     Active Substance: ASPIRIN\GLYCINE
     Indication: Thrombosis prophylaxis
     Dates: start: 20120714
  12. ASPIRIN\GLYCINE [Concomitant]
     Active Substance: ASPIRIN\GLYCINE
     Route: 048
     Dates: start: 20230714
  13. EUTHYROX [Concomitant]
     Active Substance: LEVOTHYROXINE SODIUM
     Indication: Hypothyroidism
     Dates: start: 2012, end: 20231102
  14. ROSUVASTATIN CALCIUM [Concomitant]
     Active Substance: ROSUVASTATIN CALCIUM
     Indication: Hyperlipidaemia
     Dosage: 20 MG, 1X/DAY
     Dates: start: 2012, end: 20230911
  15. FILGRASTIM [Concomitant]
     Active Substance: FILGRASTIM
     Indication: Prophylaxis
     Dates: start: 20230731
  16. ALLOPURINOL [Concomitant]
     Active Substance: ALLOPURINOL
     Indication: Hyperuricaemia
     Dosage: 300 MG, 1X/DAY
     Dates: start: 2012, end: 20230911
  17. AMLODIPINE BESYLATE\INDAPAMIDE\PERINDOPRIL ARGININE [Concomitant]
     Active Substance: AMLODIPINE BESYLATE\INDAPAMIDE\PERINDOPRIL ARGININE
     Indication: Hypertension
     Dates: start: 2017
  18. VALACYCLOVIR HYDROCHLORIDE [Concomitant]
     Active Substance: VALACYCLOVIR HYDROCHLORIDE
     Indication: Herpes simplex reactivation
     Dates: start: 20230829
  19. ACETAMINOPHEN [Concomitant]
     Active Substance: ACETAMINOPHEN
     Indication: Eye pain
     Dates: start: 2023
  20. CIPROFLOXACIN [Concomitant]
     Active Substance: CIPROFLOXACIN
     Indication: Infection prophylaxis
     Dosage: 500 MG, 2X/DAY
     Dates: start: 20230906, end: 20230910
  21. ZOLPIDEM [Concomitant]
     Active Substance: ZOLPIDEM TARTRATE
     Indication: Insomnia
     Dates: start: 2023
  22. ZYRTEC [Concomitant]
     Active Substance: CETIRIZINE HYDROCHLORIDE
     Indication: Prophylaxis
     Dates: start: 20230905, end: 20230905
  23. SOLU-MEDROL [Concomitant]
     Active Substance: METHYLPREDNISOLONE SODIUM SUCCINATE
     Indication: Prophylaxis
     Dates: start: 20230905, end: 20230905
  24. HUMAN RED BLOOD CELL [Concomitant]
     Active Substance: HUMAN RED BLOOD CELL
     Indication: Anaemia
     Dates: start: 20230914, end: 20230914
  25. DEXAMETHASONE [Concomitant]
     Active Substance: DEXAMETHASONE
     Indication: Prophylaxis
     Dosage: 16 MG, 1X/DAY
     Dates: start: 20230830, end: 20230901
  26. DEXAMETHASONE [Concomitant]
     Active Substance: DEXAMETHASONE
     Indication: Prophylaxis
     Dates: start: 20230829, end: 20230829
  27. AKYNZEO (NETUPITANT\PALONOSETRON HYDROCHLORIDE) [Concomitant]
     Active Substance: NETUPITANT\PALONOSETRON HYDROCHLORIDE
     Indication: Prophylaxis of nausea and vomiting
     Dates: start: 20230905, end: 20230905

REACTIONS (2)
  - Embolism [Recovered/Resolved with Sequelae]
  - Pneumonia [Recovered/Resolved]

NARRATIVE: CASE EVENT DATE: 20230912
